FAERS Safety Report 8808457 (Version 2)
Quarter: 2012Q4

REPORT INFORMATION
  Report Type: 
  Country: DE (occurrence: DE)
  Receive Date: 20120926
  Receipt Date: 20121002
  Transmission Date: 20130627
  Serious: Yes (Hospitalization)
  Sender: FDA-Public Use
  Company Number: DE-ELI_LILLY_AND_COMPANY-DE201209005994

PATIENT
  Age: 56 Year
  Sex: Male
  Weight: 103 kg

DRUGS (3)
  1. EFIENT [Suspect]
     Indication: STENT PLACEMENT
     Dosage: 60 mg loading
     Route: 048
     Dates: start: 20120112, end: 20120115
  2. EFIENT [Suspect]
     Dosage: 10 mg daily
     Route: 048
  3. ASA [Concomitant]

REACTIONS (1)
  - Coronary artery restenosis [Recovered/Resolved]
